FAERS Safety Report 4624255-3 (Version None)
Quarter: 2005Q1

REPORT INFORMATION
  Report Type: 
  Country: None (occurrence: None)
  Receive Date: 20050330
  Receipt Date: 20050330
  Transmission Date: 20050727
  Serious: Yes (Hospitalization)
  Sender: FDA-Public Use
  Company Number: None

PATIENT
  Age: 51 Year
  Sex: Female

DRUGS (4)
  1. MERCAPTOPURINE [Suspect]
     Dosage: 150 MG PO DAILY
     Route: 048
  2. . [Concomitant]
  3. . [Concomitant]
  4. . [Concomitant]

REACTIONS (7)
  - CHOLESTASIS [None]
  - DIARRHOEA [None]
  - FAECES DISCOLOURED [None]
  - FATIGUE [None]
  - JAUNDICE [None]
  - PRURITUS GENERALISED [None]
  - VOMITING [None]
